FAERS Safety Report 23788375 (Version 1)
Quarter: 2024Q2

REPORT INFORMATION
  Report Type: Spontaneous
  Country: CN (occurrence: CN)
  Receive Date: 20240426
  Receipt Date: 20240426
  Transmission Date: 20240716
  Serious: Yes (Hospitalization, Other)
  Sender: FDA-Public Use
  Company Number: CN-PFIZER INC-PV202400054170

PATIENT
  Age: 28 Year
  Sex: Female
  Weight: 41.5 kg

DRUGS (8)
  1. METHOTREXATE SODIUM [Suspect]
     Active Substance: METHOTREXATE SODIUM
     Indication: Benign hydatidiform mole
     Dosage: 130 MG, 1X/DAY
     Route: 042
     Dates: start: 20240403, end: 20240403
  2. METHOTREXATE SODIUM [Suspect]
     Active Substance: METHOTREXATE SODIUM
     Dosage: 130 MG, 2X/DAY
     Route: 041
     Dates: start: 20240403, end: 20240403
  3. ETOPOSIDE [Suspect]
     Active Substance: ETOPOSIDE
     Indication: Benign hydatidiform mole
     Dosage: 0.13 G, 1X/DAY
     Route: 041
     Dates: start: 20240403, end: 20240404
  4. DACTINOMYCIN [Suspect]
     Active Substance: DACTINOMYCIN
     Indication: Benign hydatidiform mole
     Dosage: 0.5 MG, 1X/DAY
     Route: 041
     Dates: start: 20240403, end: 20240404
  5. SODIUM CHLORIDE [Concomitant]
     Active Substance: SODIUM CHLORIDE
     Indication: Vehicle solution use
     Dosage: 500 ML, 2X/DAY
     Route: 041
     Dates: start: 20240403, end: 20240403
  6. SODIUM CHLORIDE [Concomitant]
     Active Substance: SODIUM CHLORIDE
     Indication: Vehicle solution use
     Dosage: 30 ML, 1X/DAY
     Route: 041
     Dates: start: 20240403, end: 20240403
  7. SODIUM CHLORIDE [Concomitant]
     Active Substance: SODIUM CHLORIDE
     Indication: Vehicle solution use
     Dosage: 250 ML, 1X/DAY
     Route: 041
     Dates: start: 20240403, end: 20240404
  8. DEXTROSE [Concomitant]
     Active Substance: DEXTROSE\DEXTROSE MONOHYDRATE
     Indication: Vehicle solution use
     Dosage: 250 ML, 1X/DAY
     Route: 041
     Dates: start: 20240403, end: 20240404

REACTIONS (5)
  - Myelosuppression [Recovering/Resolving]
  - Asthenia [Recovering/Resolving]
  - Nausea [Recovering/Resolving]
  - Vomiting [Recovering/Resolving]
  - Decreased appetite [Recovering/Resolving]

NARRATIVE: CASE EVENT DATE: 20240407
